FAERS Safety Report 7384119-1 (Version None)
Quarter: 2011Q1

REPORT INFORMATION
  Report Type: 
  Country: None (occurrence: None)
  Receive Date: 20110322
  Receipt Date: 20110309
  Transmission Date: 20110831
  Serious: Yes (Hospitalization)
  Sender: FDA-Public Use
  Company Number: 029026

PATIENT
  Sex: Female
  Weight: 64.5 kg

DRUGS (9)
  1. FOLIC ACID [Concomitant]
  2. METHYLPREDNISOLONE [Concomitant]
  3. CERTOLIZUMAB PEGOL (CDP870) [Suspect]
     Indication: RHEUMATOID ARTHRITIS
     Dosage: SEE IMAGE
     Route: 058
     Dates: start: 20050524, end: 20060510
  4. CERTOLIZUMAB PEGOL (CDP870) [Suspect]
     Indication: RHEUMATOID ARTHRITIS
     Dosage: SEE IMAGE
     Route: 058
     Dates: start: 20091118, end: 20100920
  5. CERTOLIZUMAB PEGOL (CDP870) [Suspect]
     Indication: RHEUMATOID ARTHRITIS
     Dosage: SEE IMAGE
     Route: 058
     Dates: start: 20060523, end: 20071120
  6. CERTOLIZUMAB PEGOL (CDP870) [Suspect]
     Indication: RHEUMATOID ARTHRITIS
     Dosage: SEE IMAGE
     Route: 058
     Dates: start: 20071204, end: 20090421
  7. CERTOLIZUMAB PEGOL (CDP870) [Suspect]
     Indication: RHEUMATOID ARTHRITIS
     Dosage: SEE IMAGE
     Route: 058
     Dates: start: 20090602, end: 20090922
  8. METHOTREXATE [Concomitant]
  9. DICLOFENAC [Concomitant]

REACTIONS (13)
  - OSTEONECROSIS [None]
  - OSTEOCHONDROSIS [None]
  - EROSIVE DUODENITIS [None]
  - DYSMENORRHOEA [None]
  - KNEE ARTHROPLASTY [None]
  - FIBROCYSTIC BREAST DISEASE [None]
  - LUMBAR RADICULOPATHY [None]
  - RHEUMATOID ARTHRITIS [None]
  - OVARIAN CYST [None]
  - GASTRITIS EROSIVE [None]
  - METRORRHAGIA [None]
  - CONDITION AGGRAVATED [None]
  - TUBERCULOSIS [None]
